FAERS Safety Report 4842228-2 (Version None)
Quarter: 2005Q4

REPORT INFORMATION
  Report Type: 
  Country: None (occurrence: None)
  Receive Date: 20051129
  Receipt Date: 20051114
  Transmission Date: 20060501
  Serious: Yes (Hospitalization)
  Sender: FDA-Public Use
  Company Number: 2005BI016990

PATIENT
  Age: 34 Year
  Sex: Female

DRUGS (6)
  1. AVONEX [Suspect]
     Indication: MULTIPLE SCLEROSIS
     Dosage: 30 UG; QW; IM
     Route: 030
     Dates: start: 20041122
  2. SYNTHROID [Concomitant]
  3. PROTONIX [Concomitant]
  4. VITAMIN B-12 [Concomitant]
  5. LO-OVAL BC [Concomitant]
  6. HOODIA SLIMMING TEA [Concomitant]

REACTIONS (1)
  - INTERVERTEBRAL DISC OPERATION [None]
